FAERS Safety Report 19823312 (Version 1)
Quarter: 2021Q3

REPORT INFORMATION
  Report Type: Spontaneous
  Country: DE (occurrence: DE)
  Receive Date: 20210913
  Receipt Date: 20210913
  Transmission Date: 20211014
  Serious: Yes (Other)
  Sender: FDA-Public Use
  Company Number: DE-OTSUKA-2021_031027

PATIENT
  Age: 40 Year
  Sex: Female
  Weight: 61 kg

DRUGS (3)
  1. ARIPIPRAZOLE. [Suspect]
     Active Substance: ARIPIPRAZOLE
     Indication: SCHIZOPHRENIA
     Dosage: 15 MG, QD (0 ? 40.4 GESTATIONAL WEEK)
     Route: 048
     Dates: start: 20200618, end: 20210329
  2. CLOMIFENE [Concomitant]
     Active Substance: CLOMIPHENE
     Indication: INFERTILITY FEMALE
     Dosage: 50 MG, QD (0.1 ? 0.6 GESTATIONAL WEEK)
     Route: 048
     Dates: start: 20200619, end: 20200624
  3. LAIF 900 [Concomitant]
     Indication: DEPRESSION
     Dosage: 900 MG, QD (0 ? 40.4 GESTATIONAL WEEK)
     Route: 048
     Dates: start: 20200618, end: 20210329

REACTIONS (2)
  - Gestational diabetes [Recovered/Resolved]
  - Maternal exposure during pregnancy [Unknown]

NARRATIVE: CASE EVENT DATE: 20200618
